FAERS Safety Report 7889542-4 (Version None)
Quarter: 2011Q4

REPORT INFORMATION
  Report Type: 
  Country: None (occurrence: None)
  Receive Date: 20111103
  Receipt Date: 20101012
  Transmission Date: 20120403
  Serious: No
  Sender: FDA-Public Use
  Company Number: US-BRISTOL-MYERS SQUIBB COMPANY-15332588

PATIENT
  Sex: Female

DRUGS (1)
  1. KENALOG-40 [Suspect]
     Dosage: INJECTABLE SUSPENSION, USP

REACTIONS (1)
  - PRURITUS [None]
